FAERS Safety Report 12583346 (Version 1)
Quarter: 2016Q3

REPORT INFORMATION
  Report Type: Spontaneous
  Country: US (occurrence: US)
  Receive Date: 20160722
  Receipt Date: 20160722
  Transmission Date: 20161109
  Serious: Yes (Hospitalization)
  Sender: FDA-Public Use
  Company Number: US-CELGENEUS-USA-2016014784

PATIENT
  Age: 59 Year
  Sex: Female
  Weight: 104.78 kg

DRUGS (39)
  1. ACY-1215 [Suspect]
     Active Substance: RICOLINOSTAT
     Dosage: 2000 IU (INTERNATIONAL UNIT)
     Route: 048
  2. SERTRALINE [Concomitant]
     Active Substance: SERTRALINE HYDROCHLORIDE
     Indication: DEPRESSION
     Dosage: 34.4 MILLIGRAM
     Route: 048
     Dates: start: 20151115
  3. SENNOSIDES. [Concomitant]
     Active Substance: SENNOSIDES
     Indication: CONSTIPATION
     Route: 048
     Dates: start: 20151030
  4. LACTATED RINGERS [Concomitant]
     Active Substance: CALCIUM CHLORIDE\POTASSIUM CHLORIDE\SODIUM CHLORIDE\SODIUM LACTATE
     Indication: HYPERCALCAEMIA
     Route: 041
     Dates: start: 20160105, end: 20160105
  5. VITAMIN D [Concomitant]
     Active Substance: CHOLECALCIFEROL
     Indication: VITAMIN D DEFICIENCY
  6. LISINOPRIL HCL [Concomitant]
     Active Substance: HYDROCHLOROTHIAZIDE\LISINOPRIL
     Indication: HYPERTENSION
     Dosage: 20-12.5MG
     Route: 048
     Dates: end: 20151223
  7. POTASSIUM CHLORIDE. [Concomitant]
     Active Substance: POTASSIUM CHLORIDE
     Indication: PLASMA CELL MYELOMA
     Route: 048
  8. AZITHROMYCIN ANHYDROUS. [Concomitant]
     Active Substance: AZITHROMYCIN ANHYDROUS
     Indication: PRODUCT USED FOR UNKNOWN INDICATION
     Route: 065
     Dates: start: 20150121, end: 20160121
  9. DEXAMETHASONE. [Suspect]
     Active Substance: DEXAMETHASONE
     Route: 048
     Dates: start: 20160112
  10. OXYCODONE [Concomitant]
     Active Substance: OXYCODONE
     Indication: THROMBOPHLEBITIS
     Route: 048
     Dates: start: 20151030
  11. OXYCODONE [Concomitant]
     Active Substance: OXYCODONE
     Dosage: 5-10 MG
     Route: 065
  12. ACY-1215 [Suspect]
     Active Substance: RICOLINOSTAT
     Indication: PLASMA CELL MYELOMA
     Route: 048
     Dates: start: 20151026, end: 20160107
  13. ACY-1215 [Suspect]
     Active Substance: RICOLINOSTAT
     Dosage: 800 MILLIGRAM
     Route: 048
  14. ACY-1215 [Suspect]
     Active Substance: RICOLINOSTAT
     Dosage: 75 MILLIGRAM
     Route: 048
  15. ACYCLOVIR. [Concomitant]
     Active Substance: ACYCLOVIR
     Indication: PROPHYLAXIS
     Dosage: 300 MILLIGRAM
     Route: 048
     Dates: start: 2012
  16. WARFARIN [Concomitant]
     Active Substance: WARFARIN
     Indication: THROMBOSIS PROPHYLAXIS
     Dosage: 24000 MILLILITER
     Route: 048
  17. VELCADE [Concomitant]
     Active Substance: BORTEZOMIB
     Indication: PRODUCT USED FOR UNKNOWN INDICATION
     Route: 065
  18. POMALYST [Suspect]
     Active Substance: POMALIDOMIDE
     Indication: PLASMA CELL MYELOMA
     Route: 048
     Dates: start: 20151026
  19. ACY-1215 [Suspect]
     Active Substance: RICOLINOSTAT
     Dosage: 200 MILLIGRAM/SQ. METER
     Route: 048
  20. DEXAMETHASONE. [Suspect]
     Active Substance: DEXAMETHASONE
     Indication: PLASMA CELL MYELOMA
     Route: 048
     Dates: start: 20151026, end: 20160107
  21. DOCUSATE [Concomitant]
     Active Substance: DOCUSATE
     Indication: CONSTIPATION
     Dosage: 250 MILLIGRAM
     Route: 048
     Dates: start: 20151030
  22. PRAMOX PE GLYCERIN [Concomitant]
     Indication: HAEMORRHOIDS
     Dosage: 14.4-15%
     Route: 054
     Dates: start: 20151123
  23. BISPHOSPHONATES [Concomitant]
     Active Substance: UNSPECIFIED INGREDIENT
     Indication: HYPERCALCAEMIA
     Route: 041
     Dates: start: 20160105, end: 20160105
  24. CEFEPIME [Concomitant]
     Active Substance: CEFEPIME HYDROCHLORIDE
     Indication: PRODUCT USED FOR UNKNOWN INDICATION
     Route: 065
     Dates: start: 20150121, end: 20160121
  25. POMALYST [Suspect]
     Active Substance: POMALIDOMIDE
     Route: 048
     Dates: start: 20151223, end: 20160107
  26. MELPHALAN [Concomitant]
     Active Substance: MELPHALAN
     Indication: PRODUCT USED FOR UNKNOWN INDICATION
     Route: 065
     Dates: start: 20120920
  27. VITAMIN D [Concomitant]
     Active Substance: CHOLECALCIFEROL
     Indication: SUPPLEMENTATION THERAPY
     Dosage: 200 MILLIGRAM
     Route: 048
     Dates: start: 2012
  28. ALLOPURINOL. [Concomitant]
     Active Substance: ALLOPURINOL
     Indication: HYPERURICAEMIA
     Route: 048
     Dates: start: 20151027
  29. OXYCODONE [Concomitant]
     Active Substance: OXYCODONE
     Indication: PAIN
     Dosage: 60 MILLILITER
     Route: 048
     Dates: start: 20151030
  30. ROBITUSSIN DM [Concomitant]
     Active Substance: DEXTROMETHORPHAN HYDROBROMIDE\GUAIFENESIN
     Indication: UPPER RESPIRATORY TRACT INFECTION
     Route: 048
     Dates: start: 20151210
  31. OMEPRAZOLE. [Concomitant]
     Active Substance: OMEPRAZOLE
     Indication: DYSPEPSIA
     Dosage: 4 MILLIGRAM
     Route: 048
  32. CALCITONIN [Concomitant]
     Active Substance: CALCITONIN
     Indication: HYPERCALCAEMIA
     Dosage: 428 UNITS
     Route: 030
     Dates: start: 20160105, end: 20160105
  33. CALCITONIN [Concomitant]
     Active Substance: CALCITONIN
     Dosage: 410 UNITS
     Route: 030
     Dates: start: 20160105, end: 20160105
  34. CARFILZOMIB [Concomitant]
     Active Substance: CARFILZOMIB
     Indication: PRODUCT USED FOR UNKNOWN INDICATION
     Route: 065
     Dates: start: 20160112
  35. ZYRTEC [Concomitant]
     Active Substance: CETIRIZINE HYDROCHLORIDE
     Indication: PRODUCT USED FOR UNKNOWN INDICATION
     Route: 048
  36. ALBUTEROL. [Concomitant]
     Active Substance: ALBUTEROL
     Indication: DYSPNOEA
     Dosage: 2 PUFFS
     Route: 055
  37. ACY-1215 [Suspect]
     Active Substance: RICOLINOSTAT
     Route: 048
     Dates: end: 20160107
  38. ZITHROMAX [Concomitant]
     Active Substance: AZITHROMYCIN DIHYDRATE
     Indication: UPPER RESPIRATORY TRACT INFECTION
     Dosage: 10 MILLIGRAM
     Route: 048
     Dates: start: 20151207
  39. LORATIDINE [Concomitant]
     Active Substance: LORATADINE
     Indication: SEASONAL ALLERGY
     Dosage: 80 MILLIEQUIVALENTS
     Route: 048

REACTIONS (1)
  - Hypoxia [Recovered/Resolved]

NARRATIVE: CASE EVENT DATE: 20160121
